FAERS Safety Report 9389286 (Version 2)
Quarter: 2013Q3

REPORT INFORMATION
  Report Type: Spontaneous
  Country: US (occurrence: US)
  Receive Date: 20130708
  Receipt Date: 20130807
  Transmission Date: 20140515
  Serious: No
  Sender: FDA-Public Use
  Company Number: US-AMGEN-USASP2013039263

PATIENT
  Age: 51 Year
  Sex: Female
  Weight: 51.25 kg

DRUGS (1)
  1. ENBREL [Suspect]
     Indication: PSORIASIS
     Dosage: 25 MG, 2 TIMES/WK, 2ML
     Route: 058
     Dates: start: 20040518, end: 200608

REACTIONS (2)
  - Contusion [Recovered/Resolved]
  - Discomfort [Unknown]
